FAERS Safety Report 5046298-0 (Version None)
Quarter: 2006Q3

REPORT INFORMATION
  Report Type: 
  Country: None (occurrence: None)
  Receive Date: 20060710
  Receipt Date: 20060628
  Transmission Date: 20061208
  Serious: Yes (Other)
  Sender: FDA-Public Use
  Company Number: 2006GB01114

PATIENT
  Age: 56 Year
  Sex: Female

DRUGS (1)
  1. ATENOLOL [Suspect]
     Route: 048
     Dates: start: 20060419

REACTIONS (4)
  - CIRCULATORY COLLAPSE [None]
  - FALL [None]
  - FATIGUE [None]
  - SPINAL COMPRESSION FRACTURE [None]
